FAERS Safety Report 9284211 (Version 1)
Quarter: 2013Q2

REPORT INFORMATION
  Report Type: Spontaneous
  Country: CN (occurrence: CN)
  Receive Date: 20130510
  Receipt Date: 20130510
  Transmission Date: 20140414
  Serious: Yes (Other)
  Sender: FDA-Public Use
  Company Number: CN-SANOFI-AVENTIS-2013SA046933

PATIENT
  Age: 64 Year
  Sex: Female
  Weight: 50 kg

DRUGS (1)
  1. OXALIPLATIN [Suspect]
     Indication: CHEMOTHERAPY
     Route: 041
     Dates: start: 20120715, end: 20120716

REACTIONS (2)
  - Bone marrow failure [Recovered/Resolved]
  - Leukopenia [Recovered/Resolved]
